FAERS Safety Report 7092613-6 (Version None)
Quarter: 2010Q4

REPORT INFORMATION
  Report Type: 
  Country: None (occurrence: None)
  Receive Date: 20101110
  Receipt Date: 20101102
  Transmission Date: 20110411
  Serious: Yes (Hospitalization)
  Sender: FDA-Public Use
  Company Number: US-US-EMD SERONO, INC.-7025897

PATIENT
  Sex: Male
  Weight: 3 kg

DRUGS (3)
  1. REBIF [Suspect]
     Route: 064
     Dates: end: 20100201
  2. PLENDIL [Concomitant]
     Dates: end: 20100903
  3. MAXZIDE [Concomitant]
     Dates: end: 20100903

REACTIONS (2)
  - DRUG EXPOSURE DURING PREGNANCY [None]
  - PREMATURE BABY [None]
